FAERS Safety Report 16095351 (Version 9)
Quarter: 2020Q2

REPORT INFORMATION
  Report Type: Other
  Country: CA (occurrence: CA)
  Receive Date: 20190320
  Receipt Date: 20200616
  Transmission Date: 20200713
  Serious: Yes (Other)
  Sender: FDA-Public Use
  Company Number: CA-BECTON DICKINSON-2019BDN00108

PATIENT
  Age: 42 Year
  Sex: Female
  Weight: 81 kg

DRUGS (73)
  1. ACT OXYCODONE CR [Suspect]
     Active Substance: ACETAMINOPHEN\OXYCODONE HYDROCHLORIDE
  2. OXYCODONE TEREPHTHALATE [Suspect]
     Active Substance: OXYCODONE TEREPHTHALATE
  3. OXYCODONE AND ACETAMINOPHEN [Suspect]
     Active Substance: ACETAMINOPHEN\OXYCODONE HYDROCHLORIDE
  4. SIMPONI [Suspect]
     Active Substance: GOLIMUMAB
     Route: 058
  5. D-ALPHA TOCOPHEROL [Concomitant]
     Active Substance: .ALPHA.-TOCOPHEROL, D-
  6. TEA [Concomitant]
     Active Substance: TEA LEAF
  7. PANTOLOC [Concomitant]
     Active Substance: PANTOPRAZOLE SODIUM
  8. PANTOPRAZOLE [Concomitant]
     Active Substance: PANTOPRAZOLE
  9. CHLORHEXIDINE [Suspect]
     Active Substance: CHLORHEXIDINE
  10. CHOLECALCIFEROL [Suspect]
     Active Substance: CHOLECALCIFEROL
  11. CIMZIA [Suspect]
     Active Substance: CERTOLIZUMAB PEGOL
     Indication: RHEUMATOID ARTHRITIS
     Dosage: 400 MG CYCLICAL
     Route: 058
  12. ORENCIA [Suspect]
     Active Substance: ABATACEPT
  13. CAMELLIA SINENSIS/D-ALPHA TOCOPHEROL/FISH OIL/VITAMIN D3 [Concomitant]
  14. PANTOPAC [Concomitant]
     Active Substance: AMOXICILLIN\CLARITHROMYCIN\PANTOPRAZOLE
  15. TYLENOL [Concomitant]
     Active Substance: ACETAMINOPHEN
  16. VITAMIN D3 1000 IU [Concomitant]
  17. CHLORAPREP [Suspect]
     Active Substance: CHLORHEXIDINE GLUCONATE\ISOPROPYL ALCOHOL
     Indication: INFECTION PROPHYLAXIS
     Route: 061
  18. ACETAMINOPHEN/OXYCODONE HYDROCHLORIDE/OXYCODONE TEREPHTHALATE [Suspect]
     Active Substance: ACETAMINOPHEN\OXYCODONE HYDROCHLORIDE\OXYCODONE TEREPHTHALATE
  19. CIMZIA [Suspect]
     Active Substance: CERTOLIZUMAB PEGOL
     Indication: RHEUMATOID ARTHRITIS
     Dosage: 400 MG
     Route: 058
  20. LEFLUNOMIDE. [Suspect]
     Active Substance: LEFLUNOMIDE
     Dosage: UNK
     Route: 048
  21. METHOTREXATE. [Suspect]
     Active Substance: METHOTREXATE
  22. CETIRIZINE [Concomitant]
     Active Substance: CETIRIZINE HYDROCHLORIDE
  23. FISH OIL [Concomitant]
     Active Substance: FISH OIL
  24. IBUPROFEN. [Concomitant]
     Active Substance: IBUPROFEN
  25. PLAQUENIL [Concomitant]
     Active Substance: HYDROXYCHLOROQUINE SULFATE
  26. REACTINE [Concomitant]
  27. VITAMIN E [Concomitant]
     Active Substance: .ALPHA.-TOCOPHEROL
  28. ZOPICLONE [Concomitant]
     Active Substance: ZOPICLONE
  29. CIMZIA [Suspect]
     Active Substance: CERTOLIZUMAB PEGOL
     Dosage: 400 MG, 2 EVERY 1 MONTH
     Route: 058
  30. CIMZIA [Suspect]
     Active Substance: CERTOLIZUMAB PEGOL
     Dosage: 200 MG, 2 EVERY 1 MONTH
     Route: 058
  31. CIMZIA [Suspect]
     Active Substance: CERTOLIZUMAB PEGOL
     Dosage: 400 MG
     Route: 058
  32. LEFLUNOMIDE. [Suspect]
     Active Substance: LEFLUNOMIDE
     Dosage: UNK
  33. PERIOGARD ALCOHOL FREE [Suspect]
     Active Substance: CHLORHEXIDINE GLUCONATE
     Route: 002
  34. ALFACALCIDOL [Concomitant]
     Active Substance: ALFACALCIDOL
  35. DESOGESTREL [Concomitant]
     Active Substance: DESOGESTREL
  36. DESOGESTREL/ETHINYL ESTRADIOL [Concomitant]
     Active Substance: DESOGESTREL\ETHINYL ESTRADIOL
  37. OMEGA-3 ACIDS [Concomitant]
     Active Substance: OMEGA-3 FATTY ACIDS
  38. PREDNISONE. [Concomitant]
     Active Substance: PREDNISONE
  39. SALBUTAMOL [Concomitant]
     Active Substance: ALBUTEROL
  40. VENTOLIN [Concomitant]
     Active Substance: ALBUTEROL SULFATE
  41. ACETAMINOPHEN. [Suspect]
     Active Substance: ACETAMINOPHEN
  42. CIMZIA [Suspect]
     Active Substance: CERTOLIZUMAB PEGOL
     Dosage: 400 MG CYCLICAL
     Route: 058
  43. ENBREL [Suspect]
     Active Substance: ETANERCEPT
     Dosage: UNK
  44. OXYCODONE [Suspect]
     Active Substance: OXYCODONE
  45. SULFAMETHOXAZOLE AND TRIMETHOPRIM [Suspect]
     Active Substance: SULFAMETHOXAZOLE\TRIMETHOPRIM
  46. ARAVA [Concomitant]
     Active Substance: LEFLUNOMIDE
  47. HYDROXYCHLOROQUINE SULFATE. [Concomitant]
     Active Substance: HYDROXYCHLOROQUINE SULFATE
  48. VITAMIN D3 [Suspect]
     Active Substance: CHOLECALCIFEROL
  49. ARAVA [Suspect]
     Active Substance: LEFLUNOMIDE
  50. OXYCODONE-ACETAMINOPHEN [Suspect]
     Active Substance: ACETAMINOPHEN\OXYCODONE HYDROCHLORIDE
  51. OXYCODONE HYDROCHLORIDE. [Suspect]
     Active Substance: OXYCODONE HYDROCHLORIDE
  52. CHOLECALCIFEROL [Concomitant]
     Active Substance: CHOLECALCIFEROL
  53. PANTOPRAZOLE SODIUM. [Concomitant]
     Active Substance: PANTOPRAZOLE SODIUM
  54. VITAMIN C [Concomitant]
     Active Substance: ASCORBIC ACID
  55. VITAMIN D [Concomitant]
     Active Substance: VITAMIN D NOS
  56. VITAMIN D3 [Concomitant]
     Active Substance: CHOLECALCIFEROL
  57. ACTEMRA [Suspect]
     Active Substance: TOCILIZUMAB
  58. CHLORHEXIDINE GLUCONATE ORAL RINSE [Suspect]
     Active Substance: CHLORHEXIDINE GLUCONATE
  59. METHOTREXATE SODIUM. [Suspect]
     Active Substance: METHOTREXATE SODIUM
  60. PERIOGARD [Suspect]
     Active Substance: CHLORHEXIDINE GLUCONATE
     Route: 002
  61. CAMELLIA SINENSIS [Concomitant]
     Active Substance: TEA LEAF
  62. CETIRIZINE DIHYDROCHLORIDE [Concomitant]
     Active Substance: CETIRIZINE HYDROCHLORIDE
  63. COENZYME Q10 [Concomitant]
     Active Substance: UBIDECARENONE
  64. ERGOCALCIFEROL. [Concomitant]
     Active Substance: ERGOCALCIFEROL
  65. PANTOPRAZOLE SODIUM ANHYDROUS [Concomitant]
     Active Substance: PANTOPRAZOLE SODIUM ANHYDROUS
  66. CIMZIA [Suspect]
     Active Substance: CERTOLIZUMAB PEGOL
     Dosage: 400 MG CYCLICAL
  67. CIMZIA [Suspect]
     Active Substance: CERTOLIZUMAB PEGOL
     Dosage: UNK
     Route: 058
  68. ENBREL [Suspect]
     Active Substance: ETANERCEPT
     Indication: RHEUMATOID ARTHRITIS
     Route: 058
  69. OXYCODONE HYDROCHLORIDE. [Suspect]
     Active Substance: OXYCODONE HYDROCHLORIDE
  70. BIOTONE EFA [Concomitant]
  71. GREEN TEA TINCTURE [Concomitant]
     Dosage: UNK
  72. HYDROXYCHLOROQUINE [Concomitant]
     Active Substance: HYDROXYCHLOROQUINE
  73. VITAMIN C [Concomitant]
     Active Substance: ASCORBIC ACID

REACTIONS (23)
  - Body temperature increased [Unknown]
  - Diarrhoea [Unknown]
  - Rash [Unknown]
  - Respiratory disorder [Unknown]
  - Sinusitis [Unknown]
  - Abdominal pain upper [Unknown]
  - Urticaria [Unknown]
  - Lower respiratory tract infection [Unknown]
  - Contraindicated product administered [Unknown]
  - Joint swelling [Unknown]
  - Pruritus [Unknown]
  - Incorrect route of product administration [Unknown]
  - Asthenia [Unknown]
  - Ear pain [Unknown]
  - Headache [Unknown]
  - Pain [Unknown]
  - Muscle spasticity [Unknown]
  - Off label use [Unknown]
  - Peripheral swelling [Unknown]
  - Back pain [Unknown]
  - Insomnia [Unknown]
  - Night sweats [Unknown]
  - Vomiting [Unknown]
